FAERS Safety Report 14020574 (Version 1)
Quarter: 2017Q3

REPORT INFORMATION
  Report Type: Spontaneous
  Country: US (occurrence: US)
  Receive Date: 20170928
  Receipt Date: 20170928
  Transmission Date: 20171128
  Serious: No
  Sender: FDA-Public Use
  Company Number: US-AVEDRO-AVE-2017-0255-AE

PATIENT
  Sex: Female

DRUGS (1)
  1. KXL SYSTEM [Suspect]
     Active Substance: DEVICE
     Indication: PRODUCT USED FOR UNKNOWN INDICATION
     Route: 047
     Dates: start: 201709, end: 201709

REACTIONS (1)
  - Corneal epithelium defect [Unknown]

NARRATIVE: CASE EVENT DATE: 201709
